FAERS Safety Report 24228378 (Version 1)
Quarter: 2024Q3

REPORT INFORMATION
  Report Type: Spontaneous
  Country: US (occurrence: None)
  Receive Date: 20240820
  Receipt Date: 20240820
  Transmission Date: 20241017
  Serious: Yes (Hospitalization)
  Sender: Public
  Company Number: None

PATIENT
  Sex: Male

DRUGS (6)
  1. HUMIRA [Suspect]
     Active Substance: ADALIMUMAB
     Indication: Ankylosing spondylitis
     Dosage: OTHER QUANTITY : 1 SYRINGER UNDER THE SKIN ;?FREQUENCY : EVERY OTHER WEEK;?
     Route: 058
     Dates: start: 20190312
  2. CRESTOR [Concomitant]
     Active Substance: ROSUVASTATIN CALCIUM
  3. HYDROCODONE/ACETAMINOPHEN [Concomitant]
  4. INDOMETHACIN [Concomitant]
  5. MAVIK [Concomitant]
     Active Substance: TRANDOLAPRIL
  6. NORVASC [Concomitant]
     Active Substance: AMLODIPINE BESYLATE

REACTIONS (3)
  - Joint stiffness [None]
  - Condition aggravated [None]
  - Therapy interrupted [None]
